FAERS Safety Report 4897433-6 (Version None)
Quarter: 2006Q1

REPORT INFORMATION
  Report Type: 
  Country: None (occurrence: None)
  Receive Date: 20060130
  Receipt Date: 20060130
  Transmission Date: 20060701
  Serious: Yes (Other)
  Sender: FDA-Public Use
  Company Number: None

PATIENT
  Age: 58 Year
  Sex: Female

DRUGS (1)
  1. HUMIRA [Suspect]
     Indication: RHEUMATOID ARTHRITIS
     Dosage: 40MG  Q WK   SQ
     Route: 058
     Dates: start: 20050301, end: 20050701

REACTIONS (2)
  - INFECTION IN AN IMMUNOCOMPROMISED HOST [None]
  - MYCOBACTERIUM AVIUM COMPLEX INFECTION [None]
